FAERS Safety Report 12750841 (Version 3)
Quarter: 2018Q1

REPORT INFORMATION
  Report Type: Spontaneous
  Country: US (occurrence: US)
  Receive Date: 20160915
  Receipt Date: 20180205
  Transmission Date: 20180508
  Serious: Yes (Other)
  Sender: FDA-Public Use
  Company Number: US-ASTELLAS-2016US020074

PATIENT
  Sex: Male

DRUGS (1)
  1. XTANDI [Suspect]
     Active Substance: ENZALUTAMIDE
     Indication: HORMONE-REFRACTORY PROSTATE CANCER
     Route: 048
     Dates: start: 201604

REACTIONS (4)
  - Nasopharyngitis [Unknown]
  - Tooth abscess [Recovered/Resolved]
  - Influenza [Recovering/Resolving]
  - Fatigue [Not Recovered/Not Resolved]
